FAERS Safety Report 4995426-1 (Version None)
Quarter: 2006Q2

REPORT INFORMATION
  Report Type: 
  Country: None (occurrence: None)
  Receive Date: 20060503
  Receipt Date: 20060417
  Transmission Date: 20061013
  Serious: Yes (Other)
  Sender: FDA-Public Use
  Company Number: US200604002575

PATIENT
  Age: 83 Year
  Sex: Female

DRUGS (3)
  1. ZYPREXA [Suspect]
     Dosage: ORAL
     Route: 048
     Dates: start: 20051001, end: 20051001
  2. ARICEPT /JPN/ (DONEPEZIL HYDROCHLORIDE) [Concomitant]
  3. MEMANTINE HYDROCHLORIDE (MEMANTINE HYDROCHLORIDE) [Concomitant]

REACTIONS (12)
  - AGGRESSION [None]
  - ASTHENIA [None]
  - BLOOD PRESSURE SYSTOLIC INCREASED [None]
  - ELECTROCARDIOGRAM ABNORMAL [None]
  - ELECTROENCEPHALOGRAM ABNORMAL [None]
  - EYE DISORDER [None]
  - FEELING ABNORMAL [None]
  - HEAD INJURY [None]
  - HIP FRACTURE [None]
  - MOVEMENT DISORDER [None]
  - MUSCLE RIGIDITY [None]
  - MUSCULOSKELETAL STIFFNESS [None]
